FAERS Safety Report 7470211-X (Version None)
Quarter: 2011Q2

REPORT INFORMATION
  Report Type: 
  Country: None (occurrence: None)
  Receive Date: 20110510
  Receipt Date: 20110427
  Transmission Date: 20111010
  Serious: Yes (Hospitalization)
  Sender: FDA-Public Use
  Company Number: FR-JNJFOC-20110502747

PATIENT
  Sex: Male

DRUGS (2)
  1. TRAMADOL HCL [Suspect]
     Indication: POSTOPERATIVE CARE
     Route: 048
  2. ACETAMINOPHEN W/ PROPOXYPHENE HCL [Concomitant]
     Route: 065

REACTIONS (1)
  - PSYCHOTIC DISORDER [None]
